FAERS Safety Report 5528358-0 (Version None)
Quarter: 2007Q4

REPORT INFORMATION
  Report Type: 
  Country: None (occurrence: None)
  Receive Date: 20071128
  Receipt Date: 20071123
  Transmission Date: 20080405
  Serious: Yes (Hospitalization)
  Sender: FDA-Public Use
  Company Number: FR-AVENTIS-200713741FR

PATIENT
  Age: 91 Year
  Sex: Female

DRUGS (3)
  1. LASIX [Suspect]
     Route: 042
     Dates: start: 20070902, end: 20070906
  2. COKENZEN [Suspect]
     Indication: HYPERTENSION
     Route: 048
     Dates: end: 20070910
  3. KARDEGIC                           /00002703/ [Concomitant]
     Route: 048

REACTIONS (5)
  - CARDIAC FAILURE [None]
  - DRUG INTERACTION [None]
  - HYPERKALAEMIA [None]
  - HYPOKALAEMIA [None]
  - RENAL FAILURE ACUTE [None]
